FAERS Safety Report 5310478-7 (Version None)
Quarter: 2007Q2

REPORT INFORMATION
  Report Type: 
  Country: None (occurrence: None)
  Receive Date: 20070427
  Receipt Date: 20070419
  Transmission Date: 20071010
  Serious: Yes (Other)
  Sender: FDA-Public Use
  Company Number: US-JNJFOC-20070404284

PATIENT
  Age: 51 Year
  Sex: Female
  Weight: 83.92 kg

DRUGS (5)
  1. REMICADE [Suspect]
     Indication: CROHN'S DISEASE
     Dosage: 5 DOSES
     Route: 042
     Dates: start: 20051201, end: 20061001
  2. ZOLOFT [Concomitant]
  3. SYNTHROID [Concomitant]
  4. HYDROCHLOROTHIAZIDE [Concomitant]
  5. METHOTREXATE [Concomitant]

REACTIONS (1)
  - LUPUS-LIKE SYNDROME [None]
